FAERS Safety Report 7608901-8 (Version None)
Quarter: 2011Q3

REPORT INFORMATION
  Report Type: 
  Country: None (occurrence: None)
  Receive Date: 20110714
  Receipt Date: 20110704
  Transmission Date: 20111222
  Serious: Yes (Hospitalization)
  Sender: FDA-Public Use
  Company Number: JP-PFIZER INC-2011149529

PATIENT
  Age: 65 Year
  Sex: Female
  Weight: 50.25 kg

DRUGS (18)
  1. CYCLOPHOSPHAMIDE [Suspect]
     Indication: ADULT T-CELL LYMPHOMA/LEUKAEMIA
     Dosage: 350 MG/M2 X 1/4 WEEK
     Route: 041
     Dates: start: 20110309
  2. LANSOPRAZOLE [Concomitant]
     Dosage: 15 MG, 1X/DAY
     Route: 048
  3. DOXORUBICIN HYDROCHLORIDE [Suspect]
     Dosage: 30 MG/M2 X 1/4 WEEK
     Route: 041
     Dates: start: 20110316
  4. DOXORUBICIN HYDROCHLORIDE [Suspect]
     Indication: ADULT T-CELL LYMPHOMA/LEUKAEMIA
     Dosage: 40 MG/M2 X 1/4 WEEK
     Route: 041
     Dates: start: 20110309
  5. CARBOPLATIN [Suspect]
     Indication: ADULT T-CELL LYMPHOMA/LEUKAEMIA
     Dosage: 250 MG/M2 X 1/4 WEEK
     Route: 041
     Dates: start: 20110324
  6. SULFAMETHOXAZOLE [Concomitant]
     Dosage: UNK
     Route: 048
  7. PREDNISOLONE [Suspect]
     Dosage: 40 MG/M2 X 1/4 WEEK
     Route: 048
     Dates: start: 20110316
  8. VINDESINE SULFATE [Suspect]
     Indication: ADULT T-CELL LYMPHOMA/LEUKAEMIA
     Dosage: 2.4 MG/M2 X 1/4 WEEK
     Route: 041
     Dates: start: 20110324
  9. PREDNISOLONE [Suspect]
     Dosage: 40 MG/M2 X 1/4 WEEK
     Route: 048
     Dates: start: 20110324
  10. ZOLPIDEM [Concomitant]
     Dosage: UNK
     Route: 048
  11. VINCRISTINE SULFATE [Suspect]
     Indication: ADULT T-CELL LYMPHOMA/LEUKAEMIA
     Dosage: 1 MG/M2 X 1/4 WEEK
     Route: 041
     Dates: start: 20110309
  12. PREDNISOLONE [Suspect]
     Indication: ADULT T-CELL LYMPHOMA/LEUKAEMIA
     Dosage: 40 MG/M2 X 1/4 WEEK
     Route: 048
     Dates: start: 20110309
  13. PREDNISOLONE [Suspect]
     Dosage: 1 MG/KG X 1/2 WEEK
     Route: 041
     Dates: start: 20110310
  14. DIFLUCAN [Concomitant]
     Dosage: 100 MG, 1X/DAY
     Route: 048
     Dates: end: 20110627
  15. RANIMUSTINE [Suspect]
     Indication: ADULT T-CELL LYMPHOMA/LEUKAEMIA
     Dosage: 60 MG/M2 X 1/4 WEEK
     Route: 041
     Dates: start: 20110316
  16. ETOPOSIDE [Suspect]
     Indication: ADULT T-CELL LYMPHOMA/LEUKAEMIA
     Dosage: 100 MG/M2 X 1/4 WEEK
     Route: 041
     Dates: start: 20110324
  17. ZOVIRAX [Concomitant]
     Dosage: 200 MG, 1X/DAY
     Route: 048
  18. CIPROFLOXACIN HCL [Concomitant]
     Dosage: 200 MG, 3X/DAY
     Route: 048
     Dates: start: 20110622, end: 20110627

REACTIONS (1)
  - PNEUMONIA [None]
